FAERS Safety Report 23187718 (Version 1)
Quarter: 2023Q4

REPORT INFORMATION
  Report Type: Report from Study
  Country: US (occurrence: US)
  Receive Date: 20231115
  Receipt Date: 20231115
  Transmission Date: 20240110
  Serious: Yes (Death, Other)
  Sender: FDA-Public Use
  Company Number: US-TAKEDA-2023TUS087763

PATIENT
  Age: 46 Year
  Sex: Female
  Weight: 77.288 kg

DRUGS (1)
  1. MOBOCERTINIB [Suspect]
     Active Substance: MOBOCERTINIB
     Indication: Lung neoplasm malignant
     Dosage: 120 MILLIGRAM, QD
     Route: 048
     Dates: start: 20230902

REACTIONS (7)
  - Death [Fatal]
  - Urinary tract infection [Unknown]
  - Pain [Unknown]
  - Tremor [Unknown]
  - Peripheral swelling [Recovered/Resolved]
  - Muscle twitching [Unknown]
  - Diarrhoea [Unknown]

NARRATIVE: CASE EVENT DATE: 20230901
